FAERS Safety Report 6221239-9 (Version None)
Quarter: 2009Q2

REPORT INFORMATION
  Report Type: 
  Country: None (occurrence: None)
  Receive Date: 20090610
  Receipt Date: 20090604
  Transmission Date: 20091009
  Serious: Yes (Other)
  Sender: FDA-Public Use
  Company Number: FR-MERCK-0906FRA00015

PATIENT
  Age: 85 Year
  Sex: Male

DRUGS (4)
  1. INVANZ [Suspect]
     Indication: INFECTION
     Route: 042
     Dates: start: 20081114, end: 20081130
  2. ALFUZOSIN HYDROCHLORIDE [Concomitant]
     Route: 065
     Dates: start: 20090106
  3. FINASTERIDE [Concomitant]
     Route: 065
     Dates: start: 20090106
  4. CALCIUM PHOSPHATE, TRIBASIC AND CHOLECALCIFEROL [Concomitant]
     Route: 065
     Dates: start: 20090106

REACTIONS (4)
  - ALTERED STATE OF CONSCIOUSNESS [None]
  - MASTICATION DISORDER [None]
  - MYOCLONUS [None]
  - STEREOTYPY [None]
